FAERS Safety Report 21815646 (Version 1)
Quarter: 2023Q1

REPORT INFORMATION
  Report Type: Spontaneous
  Country: US (occurrence: US)
  Receive Date: 20230104
  Receipt Date: 20230104
  Transmission Date: 20230418
  Serious: No
  Sender: FDA-Public Use
  Company Number: US-STRIDES ARCOLAB LIMITED-2022SP007820

PATIENT
  Sex: Female

DRUGS (10)
  1. MYCOPHENOLATE MOFETIL [Suspect]
     Active Substance: MYCOPHENOLATE MOFETIL
     Indication: Pyoderma gangrenosum
     Dosage: 1 GRAM (TWICE A DAY) (THERAPY WAS STOPPED INTERMITTENTLY)
     Route: 065
     Dates: start: 2020
  2. MYCOPHENOLATE MOFETIL [Suspect]
     Active Substance: MYCOPHENOLATE MOFETIL
     Dosage: UNK, RESUMED
     Route: 065
  3. DOXYCYCLINE [Suspect]
     Active Substance: DOXYCYCLINE
     Indication: Folliculitis
     Dosage: UNK
     Route: 065
     Dates: start: 201910
  4. DOXYCYCLINE [Suspect]
     Active Substance: DOXYCYCLINE
     Dosage: UNK ,RESTARTED
     Route: 065
  5. BETAMETHASONE DIPROPIONATE [Suspect]
     Active Substance: BETAMETHASONE DIPROPIONATE
     Indication: Folliculitis
     Dosage: UNK
     Route: 065
     Dates: start: 2019
  6. PREDNISONE [Concomitant]
     Active Substance: PREDNISONE
     Indication: Pyoderma gangrenosum
     Dosage: 80 MILLIGRAM (TAPER) (THERAPY CONTINUED)
     Route: 065
     Dates: start: 2020
  7. DAPSONE [Concomitant]
     Active Substance: DAPSONE
     Indication: Pyoderma gangrenosum
     Dosage: 100 MILLIGRAM PER DAY) (THERAPY CONTINUED)
     Route: 048
     Dates: start: 2020
  8. TACROLIMUS [Concomitant]
     Active Substance: TACROLIMUS
     Indication: Pyoderma gangrenosum
     Dosage: UNK, (THERAPY CONTINUED)
     Route: 061
     Dates: start: 2020
  9. HONEY [Concomitant]
     Active Substance: HONEY
     Indication: Pyoderma gangrenosum
     Dosage: UNK
     Route: 065
     Dates: start: 2020
  10. CALCIUM ALGINATE [Concomitant]
     Active Substance: CALCIUM ALGINATE
     Indication: Pyoderma gangrenosum
     Dosage: UNK
     Route: 065
     Dates: start: 2020

REACTIONS (4)
  - Nausea [Unknown]
  - Diarrhoea [Unknown]
  - Drug ineffective [Unknown]
  - Off label use [Unknown]

NARRATIVE: CASE EVENT DATE: 20200101
